FAERS Safety Report 16883774 (Version 2)
Quarter: 2020Q1

REPORT INFORMATION
  Report Type: Spontaneous
  Country: US (occurrence: US)
  Receive Date: 20191004
  Receipt Date: 20200129
  Transmission Date: 20200409
  Serious: Yes (Hospitalization)
  Sender: FDA-Public Use
  Company Number: US-HIKMA PHARMACEUTICALS USA INC.-US-H14001-19-04874

PATIENT
  Age: 66 Year
  Sex: Female
  Weight: 66.1 kg

DRUGS (13)
  1. CELLCEPT [Concomitant]
     Active Substance: MYCOPHENOLATE MOFETIL\MYCOPHENOLATE MOFETIL HYDROCHLORIDE
     Dosage: 1000 MG IN THE MORNING AND 500 MG IN THE EVENING
     Route: 065
     Dates: start: 20190820
  2. PYRIDOSTIGMINE BROMIDE. [Concomitant]
     Active Substance: PYRIDOSTIGMINE BROMIDE
     Indication: MYASTHENIC SYNDROME
     Dosage: 120 MG ONCE DAILY (AT NINE OF THE CLOCK BEFORE MIDDAY) AND 60 MG TWICE DAILY (AT FOUR OF THE CLOCK A
     Route: 065
  3. FIRDAPSE [Suspect]
     Active Substance: AMIFAMPRIDINE
     Route: 048
     Dates: start: 20190816
  4. CELLCEPT [Concomitant]
     Active Substance: MYCOPHENOLATE MOFETIL\MYCOPHENOLATE MOFETIL HYDROCHLORIDE
     Indication: MYASTHENIC SYNDROME
     Route: 048
     Dates: end: 20190820
  5. SIMVASTATIN. [Concomitant]
     Active Substance: SIMVASTATIN
     Indication: PRODUCT USED FOR UNKNOWN INDICATION
     Route: 048
  6. PREDNISONE. [Suspect]
     Active Substance: PREDNISONE
     Dosage: 5 MG EVERY OTHER DAY AND 10 MG EVERY OTHER DAY
     Route: 065
  7. FIRDAPSE [Suspect]
     Active Substance: AMIFAMPRIDINE
     Indication: MYASTHENIC SYNDROME
     Route: 048
     Dates: start: 201602, end: 201811
  8. CARVEDILOL. [Concomitant]
     Active Substance: CARVEDILOL
     Indication: PRODUCT USED FOR UNKNOWN INDICATION
     Route: 048
  9. DILTIAZEM. [Concomitant]
     Active Substance: DILTIAZEM
     Indication: PRODUCT USED FOR UNKNOWN INDICATION
     Route: 048
  10. SERTRALINE [Concomitant]
     Active Substance: SERTRALINE HYDROCHLORIDE
     Indication: PRODUCT USED FOR UNKNOWN INDICATION
     Route: 048
  11. FIRDAPSE [Suspect]
     Active Substance: AMIFAMPRIDINE
     Route: 048
     Dates: start: 2018, end: 20190816
  12. PREDNISONE. [Suspect]
     Active Substance: PREDNISONE
     Indication: MYASTHENIC SYNDROME
     Route: 065
     Dates: start: 2014, end: 201811
  13. LISINOPRIL. [Concomitant]
     Active Substance: LISINOPRIL
     Indication: PRODUCT USED FOR UNKNOWN INDICATION
     Route: 048

REACTIONS (11)
  - Balance disorder [Recovering/Resolving]
  - Asthenia [Recovering/Resolving]
  - Decreased appetite [Unknown]
  - Coordination abnormal [Not Recovered/Not Resolved]
  - Ear infection [Recovered/Resolved]
  - Gait inability [Recovering/Resolving]
  - Malaise [Recovering/Resolving]
  - Tremor [Not Recovered/Not Resolved]
  - Weight decreased [Unknown]
  - Hypokinesia [Recovering/Resolving]
  - Myasthenic syndrome [Recovering/Resolving]

NARRATIVE: CASE EVENT DATE: 201908
